FAERS Safety Report 5371332-8 (Version None)
Quarter: 2007Q2

REPORT INFORMATION
  Report Type: 
  Country: None (occurrence: None)
  Receive Date: 20070615
  Receipt Date: 20060920
  Transmission Date: 20071010
  Serious: Yes (Other)
  Sender: FDA-Public Use
  Company Number: 200617955US

PATIENT
  Age: 65 Year
  Sex: Female

DRUGS (11)
  1. LANTUS [Suspect]
     Indication: DIABETES MELLITUS NON-INSULIN-DEPENDENT
     Dosage: 10 U
     Dates: start: 20060901
  2. LANTUS [Suspect]
     Indication: DIABETES MELLITUS NON-INSULIN-DEPENDENT
     Dosage: 26 U
     Dates: start: 20060901
  3. OPTICLIK [Suspect]
     Indication: DIABETES MELLITUS NON-INSULIN-DEPENDENT
     Dates: start: 20060901
  4. ERGOCALCIFEROL [Concomitant]
  5. ASCORBIC ACID [Concomitant]
  6. FOLIC ACID [Concomitant]
  7. THIAMINE HCL [Concomitant]
  8. RETINOL [Concomitant]
  9. RIBOFLAVIN TAB [Concomitant]
  10. NICOTINAMIDE [Concomitant]
  11. PANTHENOL (MULTIVITAMINS) [Concomitant]

REACTIONS (1)
  - HYPERGLYCAEMIA [None]
